FAERS Safety Report 25611862 (Version 1)
Quarter: 2025Q3

REPORT INFORMATION
  Report Type: Spontaneous
  Country: US (occurrence: US)
  Receive Date: 20250728
  Receipt Date: 20250728
  Transmission Date: 20251021
  Serious: No
  Sender: PFIZER
  Company Number: US-PFIZER INC-202500150104

PATIENT
  Age: 69 Year
  Sex: Female
  Weight: 51.882 kg

DRUGS (1)
  1. BINIMETINIB [Suspect]
     Active Substance: BINIMETINIB
     Dosage: 30 MG (2 TABLETS), 2X/DAY (TAKE WITH OR WITHOUT FOOD) (QUANTITY: 120, REFILLS: 2, DAYS SUPPLY: 30)
     Route: 048
     Dates: start: 20250722

REACTIONS (1)
  - Anaemia [Unknown]

NARRATIVE: CASE EVENT DATE: 20250701
